FAERS Safety Report 5106880-9 (Version None)
Quarter: 2006Q3

REPORT INFORMATION
  Report Type: 
  Country: None (occurrence: None)
  Receive Date: 20060913
  Receipt Date: 20060831
  Transmission Date: 20061208
  Serious: Yes (Other)
  Sender: FDA-Public Use
  Company Number: GBWYE775324AUG06

PATIENT
  Age: 72 Year
  Sex: Male

DRUGS (7)
  1. EFFEXOR XR [Suspect]
     Indication: DEPRESSION
     Dosage: ORAL; 75 MG 1X PER 1 DAY ORAL
     Route: 048
  2. EFFEXOR [Suspect]
     Indication: DEPRESSION
     Dosage: 37.5 MG 1X PER 1 DAY ORAL
     Route: 048
  3. WARFARIN SODIUM [Concomitant]
  4. SALBUTAMOL (SALBUTAMOL) [Concomitant]
  5. ATENOLOL [Concomitant]
  6. ADALAT - SLOW RELEASE (NIFEDIPINE) [Concomitant]
  7. SIMVASTATIN [Concomitant]

REACTIONS (1)
  - SKIN INFLAMMATION [None]
